FAERS Safety Report 15228629 (Version 1)
Quarter: 2018Q3

REPORT INFORMATION
  Report Type: Spontaneous
  Country: US (occurrence: US)
  Receive Date: 20180706
  Receipt Date: 20180706
  Transmission Date: 20181010
  Serious: Yes (Other)
  Sender: FDA-Public Use
  Company Number: None

PATIENT
  Age: 75 Year
  Sex: Female
  Weight: 76.66 kg

DRUGS (12)
  1. CALCIUM [Concomitant]
     Active Substance: CALCIUM
  2. AMLODIPINE [Concomitant]
     Active Substance: AMLODIPINE BESYLATE
  3. VITAMIN D3 [Concomitant]
     Active Substance: CHOLECALCIFEROL
  4. ASPIRIN. [Concomitant]
     Active Substance: ASPIRIN
  5. HYDROCHLOROTHIAZIDE. [Concomitant]
     Active Substance: HYDROCHLOROTHIAZIDE
  6. COQ10 [Concomitant]
     Active Substance: UBIDECARENONE
  7. TYLENOL [Concomitant]
     Active Substance: ACETAMINOPHEN
  8. GLUCOSAMINE + CHONDROITIN [Concomitant]
  9. WOMENS DAILY [Concomitant]
  10. RISPERIDONE 0.25MG [Suspect]
     Active Substance: RISPERIDONE
     Indication: PRODUCT USED FOR UNKNOWN INDICATION
     Dosage: 3 PILLS 2 PM, 1 AM, BY MOUTH
     Route: 048
     Dates: start: 201802, end: 20180613
  11. IBUPROFEN. [Concomitant]
     Active Substance: IBUPROFEN
  12. FISH OIL [Concomitant]
     Active Substance: FISH OIL

REACTIONS (3)
  - Prescribed overdose [None]
  - Fatigue [None]
  - Dizziness [None]

NARRATIVE: CASE EVENT DATE: 20180613
